FAERS Safety Report 24041187 (Version 1)
Quarter: 2024Q3

REPORT INFORMATION
  Report Type: Spontaneous
  Country: US (occurrence: US)
  Receive Date: 20240702
  Receipt Date: 20240702
  Transmission Date: 20241017
  Serious: No
  Sender: SAREPTA THERAPEUTICS
  Company Number: US-SAREPTA THERAPEUTICS INC.-SRP2024-004556

PATIENT
  Age: 11 Year
  Sex: Male
  Weight: 42.3 kg

DRUGS (1)
  1. EXONDYS 51 [Suspect]
     Active Substance: ETEPLIRSEN
     Indication: Duchenne muscular dystrophy
     Dosage: 1300 MILLIGRAM, EVERY 7 DAYS
     Route: 042

REACTIONS (3)
  - Aggression [Unknown]
  - Pyrexia [Unknown]
  - Device issue [Unknown]

NARRATIVE: CASE EVENT DATE: 20240412
